FAERS Safety Report 6748088-7 (Version None)
Quarter: 2010Q2

REPORT INFORMATION
  Report Type: 
  Country: None (occurrence: None)
  Receive Date: 20100531
  Receipt Date: 20100517
  Transmission Date: 20101027
  Serious: Yes (Hospitalization)
  Sender: FDA-Public Use
  Company Number: IT-RANBAXY-2010RR-33970

PATIENT
  Sex: Female

DRUGS (2)
  1. PARACETAMOL [Suspect]
  2. ACYCLOVIR SODIUM [Suspect]

REACTIONS (1)
  - HEPATITIS ACUTE [None]
